FAERS Safety Report 7833831-6 (Version None)
Quarter: 2011Q4

REPORT INFORMATION
  Report Type: 
  Country: None (occurrence: None)
  Receive Date: 20111024
  Receipt Date: 20111019
  Transmission Date: 20120403
  Serious: Yes (Death)
  Sender: FDA-Public Use
  Company Number: US-GLAXOSMITHKLINE-A0949726A

PATIENT
  Age: 66 Year
  Sex: Male

DRUGS (6)
  1. GLYBURIDE [Concomitant]
  2. LISINOPRIL [Concomitant]
  3. ATENOLOL [Concomitant]
  4. AVANDIA [Suspect]
     Indication: TYPE 2 DIABETES MELLITUS
     Route: 048
  5. METFORMIN HCL [Concomitant]
  6. ACTOS [Concomitant]

REACTIONS (1)
  - ARTERIOSCLEROSIS [None]
